FAERS Safety Report 8789445 (Version 3)
Quarter: 2013Q1

REPORT INFORMATION
  Report Type: Spontaneous
  Country: DE (occurrence: None)
  Receive Date: 20120906
  Receipt Date: 20130313
  Transmission Date: 20140127
  Serious: Yes (Hospitalization)
  Sender: FDA-Public Use
  Company Number: ACO_31732_2012

PATIENT
  Age: 48 Year
  Sex: Male

DRUGS (3)
  1. FAMPYRA [Suspect]
     Indication: MULTIPLE SCLEROSIS
     Route: 048
     Dates: start: 20120324, end: 20120331
  2. TYSABRI (NATALIZUMAB) [Concomitant]
  3. IBUPROFEN (IBUPROFEN) [Concomitant]

REACTIONS (1)
  - Convulsion [None]
